FAERS Safety Report 6145697-3 (Version None)
Quarter: 2009Q2

REPORT INFORMATION
  Report Type: 
  Country: None (occurrence: None)
  Receive Date: 20090407
  Receipt Date: 20090316
  Transmission Date: 20091009
  Serious: Yes (Other)
  Sender: FDA-Public Use
  Company Number: ES-CELGENEUS-144-21880-09032169

PATIENT
  Sex: Male

DRUGS (4)
  1. REVLIMID [Suspect]
     Indication: MYELOFIBROSIS
     Route: 048
     Dates: start: 20080305, end: 20080301
  2. RECOMBINANT ERYTHROPOETIN [Concomitant]
     Indication: MYELOFIBROSIS
     Route: 065
  3. TRANSFUSION [Concomitant]
     Indication: DRUG USE FOR UNKNOWN INDICATION
     Route: 065
  4. TROMALYT [Concomitant]
     Route: 065

REACTIONS (3)
  - ASTHENIA [None]
  - HYPOXIA [None]
  - MUSCULOSKELETAL PAIN [None]
